FAERS Safety Report 7308104-0 (Version None)
Quarter: 2011Q1

REPORT INFORMATION
  Report Type: 
  Country: None (occurrence: None)
  Receive Date: 20110223
  Receipt Date: 20110217
  Transmission Date: 20110831
  Serious: Yes (Other)
  Sender: FDA-Public Use
  Company Number: BR-BAYER-2011-016349

PATIENT
  Sex: Male

DRUGS (1)
  1. NEXAVAR [Suspect]
     Indication: PRODUCT USED FOR UNKNOWN INDICATION
     Dosage: UNK
     Route: 048
     Dates: start: 20110101

REACTIONS (4)
  - VOMITING [None]
  - UPPER GASTROINTESTINAL HAEMORRHAGE [None]
  - HICCUPS [None]
  - OESOPHAGEAL VARICES HAEMORRHAGE [None]
